FAERS Safety Report 8379975-4 (Version None)
Quarter: 2012Q2

REPORT INFORMATION
  Report Type: 
  Country: None (occurrence: None)
  Receive Date: 20120523
  Receipt Date: 20120509
  Transmission Date: 20120825
  Serious: Yes (Other)
  Sender: FDA-Public Use
  Company Number: AT-ELI_LILLY_AND_COMPANY-AT201205003445

PATIENT
  Age: 22 Year
  Sex: Female
  Weight: 48 kg

DRUGS (2)
  1. LAMOTRIGINE [Concomitant]
     Indication: DEPRESSION
     Dosage: 75 MG, QD
  2. STRATTERA [Suspect]
     Indication: ATTENTION DEFICIT/HYPERACTIVITY DISORDER
     Dosage: 10 MG, QD
     Dates: start: 20120208, end: 20120220

REACTIONS (3)
  - ANXIETY [None]
  - PERSECUTORY DELUSION [None]
  - INSOMNIA [None]
